FAERS Safety Report 19441731 (Version 1)
Quarter: 2021Q2

REPORT INFORMATION
  Report Type: Spontaneous
  Country: ES (occurrence: ES)
  Receive Date: 20210621
  Receipt Date: 20210621
  Transmission Date: 20210717
  Serious: Yes (Death, Other)
  Sender: FDA-Public Use
  Company Number: ES-BAYER-2021-158164

PATIENT
  Age: 50 Year
  Sex: Male
  Weight: 70 kg

DRUGS (1)
  1. STIVARGA [Suspect]
     Active Substance: REGORAFENIB
     Indication: COLORECTAL CANCER METASTATIC
     Dosage: 160 MG DAILY
     Dates: start: 2019, end: 201909

REACTIONS (5)
  - Anaemia [None]
  - Asthenia [None]
  - Metastases to liver [None]
  - Decreased appetite [None]
  - Death [Fatal]

NARRATIVE: CASE EVENT DATE: 202001
